FAERS Safety Report 14700056 (Version 3)
Quarter: 2018Q2

REPORT INFORMATION
  Report Type: Spontaneous
  Country: FI (occurrence: FI)
  Receive Date: 20180330
  Receipt Date: 20180502
  Transmission Date: 20180711
  Serious: Yes (Disabling, Other)
  Sender: FDA-Public Use
  Company Number: FI-SA-2014SA121072

PATIENT
  Age: 85 Year
  Sex: Female

DRUGS (4)
  1. PANACOD [Concomitant]
     Active Substance: ACETAMINOPHEN\CODEINE PHOSPHATE
     Route: 065
  2. PLAVIX [Suspect]
     Active Substance: CLOPIDOGREL BISULFATE
     Indication: CEREBROVASCULAR DISORDER
     Dosage: 1 TAB IN THE MORNING
     Route: 048
     Dates: start: 2016
  3. BISOPROLOL RATIOPHARM [Concomitant]
     Active Substance: BISOPROLOL
     Indication: ARRHYTHMIA
  4. FURESIS [Concomitant]
     Active Substance: FUROSEMIDE
     Indication: DIURETIC THERAPY

REACTIONS (14)
  - Eye haematoma [Recovering/Resolving]
  - Fall [Unknown]
  - Dizziness [Recovered/Resolved with Sequelae]
  - Diarrhoea [Not Recovered/Not Resolved]
  - Vertigo [Recovered/Resolved with Sequelae]
  - Dental restoration failure [Recovered/Resolved with Sequelae]
  - Spinal osteoarthritis [Not Recovered/Not Resolved]
  - Tooth loss [Recovered/Resolved with Sequelae]
  - Loose tooth [Recovered/Resolved with Sequelae]
  - Therapeutic response unexpected [Unknown]
  - Pain [Not Recovered/Not Resolved]
  - Intentional product misuse [Unknown]
  - Gait disturbance [Not Recovered/Not Resolved]
  - Constipation [Not Recovered/Not Resolved]

NARRATIVE: CASE EVENT DATE: 20180411
